FAERS Safety Report 8488435-1 (Version None)
Quarter: 2012Q3

REPORT INFORMATION
  Report Type: 
  Country: None (occurrence: None)
  Receive Date: 20120705
  Receipt Date: 20120627
  Transmission Date: 20120928
  Serious: Yes (Hospitalization)
  Sender: FDA-Public Use
  Company Number: US-ASTRAZENECA-2011SE76007

PATIENT
  Age: 49 Year
  Sex: Female
  Weight: 82.6 kg

DRUGS (21)
  1. FISH OIL [Concomitant]
     Route: 048
     Dates: start: 20100210
  2. OMEPRAZOLE [Concomitant]
     Route: 048
     Dates: start: 20090416, end: 20100301
  3. CYMBALTA [Concomitant]
     Route: 048
     Dates: end: 20100301
  4. NAPROSYN SODIUM [Concomitant]
     Dates: start: 20020321
  5. NAPROSYN SODIUM [Concomitant]
     Dosage: 550 MG ONE PO BID PRN WITH FOOD 7 TO 10 D AS NEEDED
     Route: 048
     Dates: start: 20090804, end: 20100301
  6. NEXIUM [Suspect]
     Indication: GASTROOESOPHAGEAL REFLUX DISEASE
     Route: 048
     Dates: start: 20020101
  7. NEXIUM [Suspect]
     Route: 048
     Dates: start: 20020305
  8. CALCIUM CARBONATE [Concomitant]
     Dosage: 600 WITH D 600MG-200 U TABLET ONE PO BID
     Route: 048
     Dates: start: 20100210
  9. FLEXERIL [Concomitant]
     Indication: PAIN
     Route: 048
     Dates: start: 20100210
  10. KLONOPIN [Concomitant]
     Indication: ANXIETY
     Dosage: 1 TO HALF PO BID/PRN
     Route: 048
     Dates: start: 20091008
  11. MEDROL [Concomitant]
     Dates: start: 20100128, end: 20100301
  12. ROBAXIN [Concomitant]
     Indication: MUSCLE SPASMS
     Dosage: 750 MG TABLET 1 PO TID PRN
     Route: 048
     Dates: start: 20090306, end: 20100301
  13. GUAIFENESIN LA [Concomitant]
     Dates: start: 20010306
  14. BUTAL/APAP/CAFF PLUS [Concomitant]
     Dates: start: 20041117
  15. ESTRADIOL NORETHINDRONE [Concomitant]
     Dosage: 1.0 TO 0.5 MG ONE PO QD
     Route: 048
     Dates: start: 20100210
  16. LEXAPRO [Concomitant]
     Route: 048
     Dates: start: 20091217, end: 20100301
  17. LORTAB [Concomitant]
     Indication: PAIN
     Dosage: 500 TO 10 MG, ONE PO Q8H PRN
     Route: 048
     Dates: start: 20091119, end: 20100301
  18. CELEXA [Concomitant]
     Route: 048
     Dates: start: 20100210
  19. LORTAB [Concomitant]
     Dosage: 10/500 MG ONE PO TID PRN
     Route: 048
     Dates: start: 20100301
  20. OMEPRAZOLE [Concomitant]
     Route: 048
     Dates: start: 20100301
  21. ZOLOFT [Concomitant]
     Route: 048
     Dates: start: 20090416, end: 20100301

REACTIONS (6)
  - HIP FRACTURE [None]
  - PAIN [None]
  - OSTEOPENIA [None]
  - STRESS FRACTURE [None]
  - BONE DENSITY DECREASED [None]
  - RIB FRACTURE [None]
